FAERS Safety Report 17415067 (Version 3)
Quarter: 2020Q1

REPORT INFORMATION
  Report Type: Report from Study
  Country: US (occurrence: US)
  Receive Date: 20200213
  Receipt Date: 20200320
  Transmission Date: 20200409
  Serious: Yes (Other)
  Sender: FDA-Public Use
  Company Number: US-ACTELION-A-NJ2019-194824

PATIENT
  Age: 75 Year
  Sex: Female
  Weight: 84.35 kg

DRUGS (3)
  1. LASIX [Concomitant]
     Active Substance: FUROSEMIDE
     Dosage: 40 MG, QD
  2. OPSUMIT [Suspect]
     Active Substance: MACITENTAN
     Indication: PULMONARY HYPERTENSION
     Dosage: 10 MG, QD
     Route: 048
  3. UPTRAVI [Concomitant]
     Active Substance: SELEXIPAG
     Route: 048

REACTIONS (13)
  - Haemorrhage [Not Recovered/Not Resolved]
  - Transfusion [Unknown]
  - Headache [Unknown]
  - Adverse event [Unknown]
  - Pleural effusion [Unknown]
  - Condition aggravated [Unknown]
  - Gait inability [Unknown]
  - Terminal state [Unknown]
  - Peripheral swelling [Unknown]
  - Cardiac disorder [Unknown]
  - Asthenia [Unknown]
  - Blood loss anaemia [Unknown]
  - Cough [Unknown]

NARRATIVE: CASE EVENT DATE: 20200110
